FAERS Safety Report 10248729 (Version 2)
Quarter: 2014Q4

REPORT INFORMATION
  Report Type: Spontaneous
  Country: FR (occurrence: None)
  Receive Date: 20140618
  Receipt Date: 20141014
  Transmission Date: 20150528
  Serious: Yes (Hospitalization)
  Sender: FDA-Public Use
  Company Number: B0997620A

PATIENT
  Age: 96 Year
  Sex: Female

DRUGS (15)
  1. ESCITALOPRAM OXALATE. [Suspect]
     Active Substance: ESCITALOPRAM OXALATE
     Indication: PRODUCT USED FOR UNKNOWN INDICATION
     Dosage: AT NIGHT
     Route: 048
  2. COLECALCIFEROL [Concomitant]
     Active Substance: CHOLECALCIFEROL
  3. ALPRAZOLAM. [Suspect]
     Active Substance: ALPRAZOLAM
     Indication: PRODUCT USED FOR UNKNOWN INDICATION
     Route: 048
  4. CLORAZEPATE DIPOTASSIUM. [Suspect]
     Active Substance: CLORAZEPATE DIPOTASSIUM
     Indication: PRODUCT USED FOR UNKNOWN INDICATION
     Dosage: SINGLE DOSE
     Route: 048
     Dates: start: 20140325, end: 20140325
  5. TARDYFERON [Concomitant]
     Active Substance: FERROUS SULFATE\FOLIC ACID
  6. VALSARTAN. [Concomitant]
     Active Substance: VALSARTAN
  7. ACETYLLEUCINE [Concomitant]
     Active Substance: ACETYLLEUCINE
  8. CHONDROITIN SULFATE (BOVINE) [Concomitant]
     Active Substance: CHONDROITIN SULFATE (BOVINE)
  9. ZOLPIDEM [Concomitant]
     Active Substance: ZOLPIDEM\ZOLPIDEM TARTRATE
  10. OLANZAPINE. [Suspect]
     Active Substance: OLANZAPINE
     Indication: PRODUCT USED FOR UNKNOWN INDICATION
     Dosage: SINGLE DOSE
     Route: 048
     Dates: start: 20140325, end: 20140325
  11. MOVICOL [Concomitant]
     Active Substance: POLYETHYLENE GLYCOL 3350\POTASSIUM CHLORIDE\SODIUM BICARBONATE\SODIUM CHLORIDE
  12. PAROXETINE HYDROCHLORIDE. [Suspect]
     Active Substance: PAROXETINE HYDROCHLORIDE
     Indication: PRODUCT USED FOR UNKNOWN INDICATION
     Dosage: SINGLE DOSE
     Route: 048
     Dates: start: 20140325, end: 20140325
  13. POTASSIUM CHLORIDE. [Concomitant]
     Active Substance: POTASSIUM CHLORIDE
  14. AZATHIOPRINE. [Concomitant]
     Active Substance: AZATHIOPRINE
  15. PARACETAMOL [Concomitant]
     Active Substance: ACETAMINOPHEN

REACTIONS (15)
  - Extensor plantar response [None]
  - Red blood cell count decreased [None]
  - Rales [None]
  - Medication error [None]
  - Disturbance in attention [None]
  - Respiratory tract congestion [None]
  - Hypertension [None]
  - Somnolence [None]
  - Urticaria [None]
  - Sepsis [None]
  - C-reactive protein increased [None]
  - Drug interaction [None]
  - Wrong patient received medication [None]
  - Areflexia [None]
  - Lung disorder [None]

NARRATIVE: CASE EVENT DATE: 20140325
